FAERS Safety Report 4583531-3 (Version None)
Quarter: 2005Q1

REPORT INFORMATION
  Report Type: 
  Country: None (occurrence: None)
  Receive Date: 20050211
  Receipt Date: 20050128
  Transmission Date: 20050727
  Serious: Yes (Hospitalization)
  Sender: FDA-Public Use
  Company Number: 230003M05AUS

PATIENT
  Age: 48 Year
  Sex: Female

DRUGS (4)
  1. REBIF [Suspect]
     Indication: RELAPSING-REMITTING MULTIPLE SCLEROSIS
     Dosage: 44 MCG, 3 IN 1 WEEKS,  SUBCUTANEOUS
     Route: 058
  2. CITALOPRAM [Concomitant]
  3. SINEMET [Concomitant]
  4. CARBAMAZEPINE [Concomitant]

REACTIONS (2)
  - INJECTION SITE ABSCESS [None]
  - INJECTION SITE ERYTHEMA [None]
